FAERS Safety Report 13352941 (Version 1)
Quarter: 2017Q1

REPORT INFORMATION
  Report Type: Spontaneous
  Country: MA (occurrence: MA)
  Receive Date: 20170320
  Receipt Date: 20170320
  Transmission Date: 20170429
  Serious: Yes (Other)
  Sender: FDA-Public Use
  Company Number: PHHY2016MA153890

PATIENT
  Age: 61 Year
  Sex: Male

DRUGS (1)
  1. METFORMIN [Suspect]
     Active Substance: METFORMIN HYDROCHLORIDE
     Indication: TYPE 2 DIABETES MELLITUS
     Dosage: 2 G, UNK
     Route: 065

REACTIONS (6)
  - Macule [Recovered/Resolved]
  - Dermatitis psoriasiform [Recovered/Resolved]
  - Drug eruption [Recovered/Resolved]
  - Papule [Recovered/Resolved]
  - Skin lesion [Recovered/Resolved]
  - Toxic skin eruption [Recovered/Resolved]
